FAERS Safety Report 25614187 (Version 1)
Quarter: 2025Q3

REPORT INFORMATION
  Report Type: Spontaneous
  Country: JP (occurrence: JP)
  Receive Date: 20250728
  Receipt Date: 20250728
  Transmission Date: 20251021
  Serious: Yes (Other)
  Sender: AMGEN
  Company Number: JP-AMGEN-JPNSP2025145713

PATIENT

DRUGS (4)
  1. ROMOSOZUMAB [Suspect]
     Active Substance: ROMOSOZUMAB
     Indication: Osteoporosis
     Dosage: 210 MILLIGRAM, QMO
     Route: 065
  2. TERIPARATIDE [Suspect]
     Active Substance: TERIPARATIDE
     Indication: Osteoporosis
     Dosage: 20 MICROGRAM, QD
     Route: 065
  3. TERIPARATIDE [Suspect]
     Active Substance: TERIPARATIDE
     Route: 065
  4. TERIPARATIDE [Suspect]
     Active Substance: TERIPARATIDE
     Dosage: 56.5 MICROGRAM, QWK
     Route: 065

REACTIONS (3)
  - Cataract [Unknown]
  - Osteoarthritis [Unknown]
  - Decubitus ulcer [Unknown]
